FAERS Safety Report 9205429 (Version 2)
Quarter: 2013Q2

REPORT INFORMATION
  Report Type: Spontaneous
  Country: IT (occurrence: IT)
  Receive Date: 20130403
  Receipt Date: 20130405
  Transmission Date: 20140414
  Serious: Yes (Hospitalization)
  Sender: FDA-Public Use
  Company Number: IT-ABBOTT-13X-083-1071291-00

PATIENT
  Age: 43 Year
  Sex: Female

DRUGS (4)
  1. DEPAKIN CHRONO [Suspect]
     Indication: GRAND MAL CONVULSION
     Dosage: EXTENDED RELEASE
     Route: 048
     Dates: start: 20130312, end: 20130312
  2. DEPAKIN CHRONO [Suspect]
     Dosage: EXTENDED RELEASE
     Route: 048
     Dates: start: 20080517
  3. GARDENAL [Suspect]
     Indication: GRAND MAL CONVULSION
     Dosage: 1400 MILLIGRAM(S) ;TOTAL
     Route: 048
     Dates: start: 20130312, end: 20130312
  4. GARDENAL [Suspect]
     Route: 048
     Dates: start: 20060101

REACTIONS (3)
  - Toxicity to various agents [Recovered/Resolved]
  - Suicide attempt [Recovered/Resolved]
  - Decreased activity [Recovered/Resolved]
